FAERS Safety Report 10784911 (Version 1)
Quarter: 2015Q1

REPORT INFORMATION
  Report Type: Spontaneous
  Country: US (occurrence: US)
  Receive Date: 20150211
  Receipt Date: 20150211
  Transmission Date: 20150721
  Serious: No
  Sender: FDA-Public Use
  Company Number: US-GLAXOSMITHKLINE-A1074136A

PATIENT

DRUGS (1)
  1. LAMOTRIGINE. [Suspect]
     Active Substance: LAMOTRIGINE
     Indication: ANXIETY
     Dosage: 100 MG EVERY NIGHT.
     Route: 048

REACTIONS (5)
  - Oral herpes [Unknown]
  - Pruritus [Unknown]
  - Aphthous stomatitis [Unknown]
  - Paraesthesia oral [Unknown]
  - Ageusia [Unknown]

NARRATIVE: CASE EVENT DATE: 201405
